FAERS Safety Report 13805858 (Version 1)
Quarter: 2017Q3

REPORT INFORMATION
  Report Type: Spontaneous
  Country: US (occurrence: US)
  Receive Date: 20170728
  Receipt Date: 20170728
  Transmission Date: 20171127
  Serious: No
  Sender: FDA-Public Use
  Company Number: US-LEO PHARMA-303770

PATIENT
  Sex: Male

DRUGS (1)
  1. PICATO [Suspect]
     Active Substance: INGENOL MEBUTATE
     Indication: ACTINIC KERATOSIS
     Dosage: 2 TUBES TO NOSE, CHEEKBONES, TEMPLE AND FOREHEAD DAILY FOR 3 DAYS
     Route: 061
     Dates: start: 20170707, end: 20170708

REACTIONS (2)
  - Eye pain [Recovered/Resolved]
  - Blepharospasm [Recovered/Resolved]

NARRATIVE: CASE EVENT DATE: 20170708
